FAERS Safety Report 8785784 (Version 2)
Quarter: 2012Q4

REPORT INFORMATION
  Report Type: 
  Country: IE (occurrence: IE)
  Receive Date: 20120914
  Receipt Date: 20121003
  Transmission Date: 20130627
  Serious: Yes (Other)
  Sender: FDA-Public Use
  Company Number: IE-ABBOTT-12P-229-0978184-00

PATIENT
  Age: 61 Year
  Sex: Female
  Weight: 72.6 kg

DRUGS (4)
  1. CREON [Suspect]
     Indication: STEATORRHOEA
     Dosage: Dose strength 25,000
     Dates: start: 20120828, end: 20120829
  2. GLUCOPHAGE [Concomitant]
     Indication: DIABETES MELLITUS
     Route: 048
  3. LANTUS [Concomitant]
     Indication: DIABETES MELLITUS
     Route: 058
  4. MOTILIUM [Concomitant]
     Indication: NAUSEA
     Route: 048

REACTIONS (3)
  - Swollen tongue [Recovered/Resolved]
  - Hypersensitivity [Recovered/Resolved]
  - Pruritus [Recovered/Resolved]
